FAERS Safety Report 9769045 (Version 1)
Quarter: 2013Q4

REPORT INFORMATION
  Report Type: Spontaneous
  Country: ES (occurrence: None)
  Receive Date: 20131216
  Receipt Date: 20131216
  Transmission Date: 20140711
  Serious: Yes (Hospitalization)
  Sender: FDA-Public Use
  Company Number: ES-ALKEM-000432

PATIENT
  Age: 51 Year
  Sex: Male

DRUGS (1)
  1. METFORMIN [Suspect]
     Indication: TYPE 2 DIABETES MELLITUS

REACTIONS (2)
  - Hepatotoxicity [None]
  - Drug-induced liver injury [None]
